FAERS Safety Report 14513773 (Version 1)
Quarter: 2018Q1

REPORT INFORMATION
  Report Type: Spontaneous
  Country: US (occurrence: US)
  Receive Date: 20180209
  Receipt Date: 20180209
  Transmission Date: 20180509
  Serious: No
  Sender: FDA-Public Use
  Company Number: US-ALLERGAN-1763718US

PATIENT
  Age: 64 Year
  Sex: Male

DRUGS (4)
  1. REFRESH OPTIVE ADVANCED [Concomitant]
     Active Substance: CARBOXYMETHYLCELLULOSE SODIUM\GLYCERIN\POLYSORBATE 80
     Indication: ABNORMAL SENSATION IN EYE
     Dosage: UNK, PRN
     Route: 047
  2. PREVACID [Concomitant]
     Active Substance: LANSOPRAZOLE
     Dosage: UNK UNK, QAM
     Route: 065
  3. RESTASIS [Suspect]
     Active Substance: CYCLOSPORINE
     Indication: DRY EYE
     Dosage: 2 GTT, BID
     Route: 047
     Dates: start: 201710
  4. RAPAFLO [Concomitant]
     Active Substance: SILODOSIN
     Dosage: UNK UNK, QHS
     Route: 065

REACTIONS (3)
  - Dry eye [Recovering/Resolving]
  - Photophobia [Unknown]
  - Lacrimation increased [Recovering/Resolving]
